FAERS Safety Report 6663055-X (Version None)
Quarter: 2010Q1

REPORT INFORMATION
  Report Type: 
  Country: None (occurrence: None)
  Receive Date: 20100329
  Receipt Date: 20090204
  Transmission Date: 20100710
  Serious: Yes (Life-Threatening, Hospitalization)
  Sender: FDA-Public Use
  Company Number: 2009EN000022

PATIENT
  Age: 16 Year
  Sex: Female
  Weight: 49.25 kg

DRUGS (6)
  1. ONCASPAR [Suspect]
     Indication: ACUTE LYMPHOCYTIC LEUKAEMIA
     Dosage: 2500 MG/M**2; IM
     Route: 030
     Dates: start: 20080929, end: 20090120
  2. VINCRISTINE [Concomitant]
  3. METHOTREXATE [Concomitant]
  4. BACTRIM DS [Concomitant]
  5. AMBIEN [Concomitant]
  6. LEXAPRO [Concomitant]

REACTIONS (5)
  - ANAPHYLACTIC REACTION [None]
  - DYSPNOEA [None]
  - HYPOTENSION [None]
  - LOSS OF CONSCIOUSNESS [None]
  - WHEEZING [None]
